FAERS Safety Report 10026150 (Version 1)
Quarter: 2014Q1

REPORT INFORMATION
  Report Type: Spontaneous
  Country: US (occurrence: US)
  Receive Date: 20140320
  Receipt Date: 20140320
  Transmission Date: 20141002
  Serious: No
  Sender: FDA-Public Use
  Company Number: US-ALLERGAN-1400015US

PATIENT
  Age: 95 Year
  Sex: Female

DRUGS (12)
  1. ALPHAGAN P [Suspect]
     Indication: INTRAOCULAR PRESSURE INCREASED
     Dosage: 1 GTT, BID
     Route: 047
     Dates: start: 201312
  2. ALPHAGAN P [Suspect]
     Dosage: 1 GTT, TID
     Route: 047
     Dates: start: 201312
  3. LUMIGAN 0.01% [Suspect]
     Indication: INTRAOCULAR PRESSURE INCREASED
     Dosage: 2 GTT, QHS
     Route: 047
     Dates: start: 20131202
  4. REFRESH P.M. [Suspect]
     Indication: DRY EYE
     Dosage: UNK
     Route: 047
     Dates: start: 201312
  5. SIMBRINZA [Suspect]
     Indication: PRODUCT USED FOR UNKNOWN INDICATION
  6. DUREZOL [Concomitant]
     Indication: POSTOPERATIVE CARE
     Dosage: 1 GTT, QD
     Route: 047
     Dates: start: 201311, end: 20131209
  7. LOTEMAX [Concomitant]
     Indication: POSTOPERATIVE CARE
     Dosage: 1 GTT, QD
     Route: 047
  8. CARTIA                             /00002701/ [Concomitant]
     Indication: ATRIAL FIBRILLATION
     Dosage: UNK UNK, QD
     Route: 048
     Dates: start: 2008
  9. FUROSEMIDE [Concomitant]
     Indication: DIURETIC THERAPY
     Dosage: UNK UNK, QD
     Route: 048
     Dates: start: 2008
  10. LANOXIN [Concomitant]
     Indication: ATRIAL FIBRILLATION
     Dosage: UNK UNK, QD
     Route: 048
     Dates: start: 2008
  11. POTASSIUM [Concomitant]
     Indication: ELECTROLYTE SUBSTITUTION THERAPY
     Dosage: UNK UNK, QD
     Route: 048
  12. ILEVRO [Concomitant]
     Indication: POSTOPERATIVE CARE
     Dosage: 1 GTT, TID
     Route: 047
     Dates: start: 201311

REACTIONS (9)
  - Eyelid oedema [Recovered/Resolved]
  - Erythema [Recovered/Resolved]
  - Skin swelling [Recovered/Resolved]
  - Eye discharge [Recovered/Resolved]
  - Heart rate decreased [Unknown]
  - Eye irritation [Recovered/Resolved]
  - Foreign body sensation in eyes [Recovered/Resolved]
  - Erythema of eyelid [Recovered/Resolved]
  - Eye pain [Recovered/Resolved]
